FAERS Safety Report 21651971 (Version 1)
Quarter: 2022Q4

REPORT INFORMATION
  Report Type: Spontaneous
  Country: CA (occurrence: CA)
  Receive Date: 20221128
  Receipt Date: 20221128
  Transmission Date: 20230113
  Serious: Yes (Other)
  Sender: FDA-Public Use
  Company Number: CA-BAYER-2022P023093

PATIENT
  Age: 20 Year
  Sex: Female

DRUGS (3)
  1. YASMIN [Suspect]
     Active Substance: DROSPIRENONE\ETHINYL ESTRADIOL
     Indication: Menstruation irregular
     Dosage: UNK
     Route: 048
     Dates: start: 20100626
  2. HEPARIN [Concomitant]
     Active Substance: HEPARIN SODIUM
     Dosage: 5000 UNITS, TID
     Route: 058
  3. PHENYTOIN [Concomitant]
     Active Substance: PHENYTOIN
     Dosage: 125 MG, TID
     Route: 042

REACTIONS (4)
  - Cerebral venous sinus thrombosis [None]
  - Encephalitis [None]
  - Cerebral infarction [None]
  - Cerebral haemorrhage [None]

NARRATIVE: CASE EVENT DATE: 20100728
